FAERS Safety Report 5320941-0 (Version None)
Quarter: 2007Q2

REPORT INFORMATION
  Report Type: 
  Country: None (occurrence: None)
  Receive Date: 20070509
  Receipt Date: 20070502
  Transmission Date: 20071010
  Serious: Yes (Death)
  Sender: FDA-Public Use
  Company Number: AT-ABBOTT-06P-009-0331026-00

PATIENT
  Age: 66 Year
  Sex: Female
  Weight: 112 kg

DRUGS (4)
  1. ZEMPLAR [Suspect]
     Indication: HYPERPARATHYROIDISM SECONDARY
     Route: 042
     Dates: start: 20051101, end: 20060409
  2. ZEMPLAR [Suspect]
     Route: 042
     Dates: start: 20051101, end: 20051222
  3. ANTIPHOS [Concomitant]
     Indication: HYPERPARATHYROIDISM SECONDARY
     Route: 048
     Dates: end: 20060409
  4. ALFACALCIDOL [Concomitant]
     Indication: HYPERPARATHYROIDISM SECONDARY
     Route: 042

REACTIONS (2)
  - SEPSIS [None]
  - VASCULAR BYPASS GRAFT [None]
